FAERS Safety Report 9215334 (Version 1)
Quarter: 2013Q2

REPORT INFORMATION
  Report Type: Report from Study
  Country: US (occurrence: PE)
  Receive Date: 20130405
  Receipt Date: 20130405
  Transmission Date: 20140414
  Serious: Yes (Death, Other)
  Sender: FDA-Public Use
  Company Number: US-009507513-0609PER00012B1

PATIENT
  Age: 0 Year
  Sex: Male
  Weight: .65 kg

DRUGS (3)
  1. RALTEGRAVIR POTASSIUM [Suspect]
     Indication: ACQUIRED IMMUNODEFICIENCY SYNDROME
     Dosage: 400 MG, BID
     Route: 064
     Dates: start: 20050726, end: 20060921
  2. EPIVIR [Suspect]
     Indication: ACQUIRED IMMUNODEFICIENCY SYNDROME
     Dosage: 300 MG, QD
     Route: 064
     Dates: start: 20050726, end: 20060921
  3. VIREAD [Concomitant]
     Indication: ACQUIRED IMMUNODEFICIENCY SYNDROME
     Dosage: 300 MG, QD
     Route: 064
     Dates: start: 20050726, end: 20060921

REACTIONS (3)
  - Death neonatal [Fatal]
  - Premature baby [Unknown]
  - Maternal exposure during pregnancy [Unknown]
